FAERS Safety Report 25053037 (Version 1)
Quarter: 2025Q1

REPORT INFORMATION
  Report Type: Spontaneous
  Country: US (occurrence: US)
  Receive Date: 20250307
  Receipt Date: 20250307
  Transmission Date: 20250409
  Serious: No
  Sender: SANOFI AVENTIS
  Company Number: US-SA-2025SA061862

PATIENT
  Sex: Female

DRUGS (1)
  1. DUPIXENT [Suspect]
     Active Substance: DUPILUMAB
     Indication: Eczema
     Dosage: 300 MG, QOW
     Route: 058
     Dates: start: 20241112, end: 20250116

REACTIONS (7)
  - Rash [Unknown]
  - Peripheral swelling [Unknown]
  - Skin fissures [Unknown]
  - Haemorrhage [Unknown]
  - Gait inability [Unknown]
  - Skin irritation [Unknown]
  - Sleep disorder due to a general medical condition [Unknown]
